FAERS Safety Report 7670217-1 (Version None)
Quarter: 2011Q3

REPORT INFORMATION
  Report Type: 
  Country: None (occurrence: None)
  Receive Date: 20110808
  Receipt Date: 20110801
  Transmission Date: 20111222
  Serious: Yes (Hospitalization)
  Sender: FDA-Public Use
  Company Number: US-B.I. PHARMACEUTICALS,INC./RIDGEFIELD-2011-BP-15790BP

PATIENT
  Sex: Female
  Weight: 94.35 kg

DRUGS (21)
  1. BIOTIN [Concomitant]
  2. PRADAXA [Suspect]
     Indication: ATRIAL FIBRILLATION
     Dosage: 300 MG
     Route: 048
     Dates: start: 20110527, end: 20110528
  3. CALCIUM CARBONATE [Concomitant]
     Dosage: 500 MG
  4. VITAMIN B-12 [Concomitant]
  5. VITAMIN B6 [Concomitant]
  6. COPPER [Concomitant]
  7. FLAXSEED OIL [Concomitant]
  8. WARFARIN SODIUM [Concomitant]
     Indication: ATRIAL FIBRILLATION
     Dosage: 6 MG
  9. MAGNESIUM [Concomitant]
  10. PRAVACHOL [Concomitant]
     Dosage: 40 MG
  11. VITAMIN D [Concomitant]
  12. BARIATRIC MULTI (FLINTSTONES COMPLETE) [Concomitant]
  13. SILICA [Concomitant]
  14. LISINOPRIL [Concomitant]
     Dosage: 40 MG
  15. ASPIRIN [Concomitant]
     Dosage: 81 MG
  16. ASCORBIC ACID [Concomitant]
  17. LASIX [Concomitant]
     Dosage: 10 MG
  18. VITAMIN E [Concomitant]
  19. OXYGEN [Concomitant]
  20. PRILOSEC [Concomitant]
     Dosage: 20 MG
  21. FERROUS SULFATE TAB [Concomitant]
     Dosage: 240 MG

REACTIONS (6)
  - ASTHENIA [None]
  - DEHYDRATION [None]
  - DIARRHOEA [None]
  - ELECTROCARDIOGRAM CHANGE [None]
  - BLOOD PRESSURE DECREASED [None]
  - HEART RATE INCREASED [None]
